FAERS Safety Report 17003364 (Version 3)
Quarter: 2019Q4

REPORT INFORMATION
  Report Type: Spontaneous
  Country: JP (occurrence: JP)
  Receive Date: 20191107
  Receipt Date: 20191204
  Transmission Date: 20200122
  Serious: Yes (Hospitalization, Other)
  Sender: FDA-Public Use
  Company Number: JP-ASTELLAS-2019JP024859

PATIENT
  Age: 86 Year
  Sex: Female

DRUGS (3)
  1. RALOXIFENE HYDROCHLORIDE. [Concomitant]
     Active Substance: RALOXIFENE HYDROCHLORIDE
     Indication: PRODUCT USED FOR UNKNOWN INDICATION
     Dosage: 60 MG/DAY, UNKNOWN FREQ.
     Route: 048
  2. PROGRAF [Suspect]
     Active Substance: TACROLIMUS
     Indication: RHEUMATOID ARTHRITIS
     Route: 048
  3. AMLODIPINE                         /00972402/ [Concomitant]
     Active Substance: AMLODIPINE BESYLATE
     Indication: PRODUCT USED FOR UNKNOWN INDICATION
     Dosage: 5 MG/DAY, UNKNOWN FREQ.
     Route: 048

REACTIONS (3)
  - Prescribed underdose [Unknown]
  - Femoral neck fracture [Not Recovered/Not Resolved]
  - Fall [Not Recovered/Not Resolved]

NARRATIVE: CASE EVENT DATE: 20191104
